FAERS Safety Report 25762054 (Version 1)
Quarter: 2025Q3

REPORT INFORMATION
  Report Type: Spontaneous
  Country: US (occurrence: None)
  Receive Date: 20250904
  Receipt Date: 20250904
  Transmission Date: 20251020
  Serious: No
  Sender: FDA-CTU
  Company Number: None

PATIENT
  Age: 87 Year
  Sex: Female
  Weight: 61.23 kg

DRUGS (10)
  1. BYSTOLIC [Suspect]
     Active Substance: NEBIVOLOL HYDROCHLORIDE
     Indication: Supraventricular extrasystoles
     Route: 048
     Dates: end: 20250818
  2. ALBUTEROL [Concomitant]
     Active Substance: ALBUTEROL
  3. BREYNA [Concomitant]
     Active Substance: BUDESONIDE\FORMOTEROL FUMARATE
  4. VALSARTAN [Concomitant]
     Active Substance: VALSARTAN
  5. HYDRALAZINE [Concomitant]
     Active Substance: HYDRALAZINE HYDROCHLORIDE
  6. ELIQUIS [Concomitant]
     Active Substance: APIXABAN
  7. TYLENOL [Concomitant]
     Active Substance: ACETAMINOPHEN
  8. MOTRIN [Concomitant]
     Active Substance: IBUPROFEN
  9. VITAMINS [Concomitant]
     Active Substance: VITAMINS
  10. TUMS [Concomitant]
     Active Substance: CALCIUM CARBONATE

REACTIONS (4)
  - Headache [None]
  - Nausea [None]
  - Asthma [None]
  - Bronchitis [None]

NARRATIVE: CASE EVENT DATE: 20250810
